FAERS Safety Report 5226059-X (Version None)
Quarter: 2007Q1

REPORT INFORMATION
  Report Type: 
  Country: None (occurrence: None)
  Receive Date: 20070129
  Receipt Date: 20070118
  Transmission Date: 20070707
  Serious: Yes (Hospitalization)
  Sender: FDA-Public Use
  Company Number: 227263

PATIENT
  Age: 85 Year
  Sex: Female

DRUGS (8)
  1. RANIBIZUMAB (RANIBIZUMAB) PWDR + SOLVENT, INJECTION SOLN [Suspect]
     Indication: MACULAR DEGENERATION
     Dosage: INTRAVITREAL
     Route: 050
     Dates: start: 20051118
  2. ASPIRIN [Concomitant]
  3. COLACE (DOCUSATE SODIUM) [Concomitant]
  4. LOVENOX [Concomitant]
  5. NEXIUM [Concomitant]
  6. LEVOTHYROXINE SODIUM [Concomitant]
  7. ZOCOR [Concomitant]
  8. TYLENOL (CAPLET) [Concomitant]

REACTIONS (4)
  - APHASIA [None]
  - DRUG INTERACTION [None]
  - MIGRAINE [None]
  - TRANSIENT ISCHAEMIC ATTACK [None]
